FAERS Safety Report 6285570-3 (Version None)
Quarter: 2009Q3

REPORT INFORMATION
  Report Type: 
  Country: None (occurrence: None)
  Receive Date: 20090727
  Receipt Date: 20090720
  Transmission Date: 20100115
  Serious: Yes (Hospitalization)
  Sender: FDA-Public Use
  Company Number: US-ABBOTT-09P-163-0586535-00

PATIENT

DRUGS (2)
  1. HUMIRA [Suspect]
     Indication: RHEUMATOID ARTHRITIS
     Route: 058
     Dates: start: 20020101
  2. TYLENOL [Concomitant]
     Indication: ARTHRALGIA
     Dosage: AS NEEDED FOR PAIN

REACTIONS (3)
  - CORONARY ARTERY OCCLUSION [None]
  - DRUG DELIVERY SYSTEM MALFUNCTION [None]
  - DRUG DOSE OMISSION [None]
